FAERS Safety Report 18295378 (Version 4)
Quarter: 2020Q4

REPORT INFORMATION
  Report Type: Spontaneous
  Country: JP (occurrence: JP)
  Receive Date: 20200922
  Receipt Date: 20201002
  Transmission Date: 20210113
  Serious: Yes (Other)
  Sender: FDA-Public Use
  Company Number: JP-AMGEN-JPNSP2020152101

PATIENT
  Age: 2 Year
  Sex: Male

DRUGS (1)
  1. ETANERCEPT [Suspect]
     Active Substance: ETANERCEPT
     Indication: CHRONIC RECURRENT MULTIFOCAL OSTEOMYELITIS
     Dosage: 5 MILLIGRAM, 2 TIMES/WK
     Route: 065

REACTIONS (5)
  - Drug effective for unapproved indication [Unknown]
  - Paradoxical drug reaction [Recovered/Resolved]
  - Off label use [Unknown]
  - Pyoderma gangrenosum [Recovered/Resolved]
  - Product use in unapproved indication [Unknown]
